FAERS Safety Report 4505728-0 (Version None)
Quarter: 2004Q4

REPORT INFORMATION
  Report Type: 
  Country: None (occurrence: None)
  Receive Date: 20041025
  Receipt Date: 20031222
  Transmission Date: 20050328
  Serious: Yes (Other)
  Sender: FDA-Public Use
  Company Number: US-JNJFOC-20031203792

PATIENT

DRUGS (9)
  1. REMICADE [Suspect]
     Indication: RHEUMATOID ARTHRITIS
     Dosage: 700 MG INTRAVENOUS
     Route: 042
     Dates: start: 20031021
  2. METHOTREXATE [Concomitant]
  3. PREDNISONE [Concomitant]
  4. LIPITOR [Concomitant]
  5. ATENOLOL [Concomitant]
  6. FOLIC ACID [Concomitant]
  7. ACTINEL (CYPROHEPTADINE HYDROCHLORIDE) [Concomitant]
  8. GLUCOSAMINE [Concomitant]
  9. CALCIUM [Concomitant]

REACTIONS (2)
  - GASTROENTERITIS [None]
  - GUILLAIN-BARRE SYNDROME [None]
